FAERS Safety Report 19058096 (Version 1)
Quarter: 2021Q1

REPORT INFORMATION
  Report Type: Spontaneous
  Country: US (occurrence: US)
  Receive Date: 20210324
  Receipt Date: 20210324
  Transmission Date: 20210420
  Serious: No
  Sender: FDA-Public Use
  Company Number: US-TEVA-2021-US-1887823

PATIENT
  Age: 73 Year

DRUGS (2)
  1. NEFAZODONE HYDROCHLORIDE TEVA [Suspect]
     Active Substance: NEFAZODONE HYDROCHLORIDE
     Indication: DEPRESSION
     Route: 065
  2. NEFAZODONE HYDROCHLORIDE TEVA [Suspect]
     Active Substance: NEFAZODONE HYDROCHLORIDE
     Indication: ANXIETY
     Dosage: 375 MG A DAY
     Route: 065

REACTIONS (8)
  - Apathy [Not Recovered/Not Resolved]
  - Treatment noncompliance [Unknown]
  - Tremor [Not Recovered/Not Resolved]
  - Withdrawal syndrome [Not Recovered/Not Resolved]
  - Decreased appetite [Not Recovered/Not Resolved]
  - Insomnia [Not Recovered/Not Resolved]
  - Product availability issue [Unknown]
  - Irritability [Not Recovered/Not Resolved]
